FAERS Safety Report 19799282 (Version 6)
Quarter: 2023Q1

REPORT INFORMATION
  Report Type: Spontaneous
  Country: US (occurrence: US)
  Receive Date: 20210907
  Receipt Date: 20230125
  Transmission Date: 20230418
  Serious: Yes (Other)
  Sender: FDA-Public Use
  Company Number: US-PFIZER INC-202101140320

PATIENT
  Age: 77 Year
  Sex: Female
  Weight: 50.8 kg

DRUGS (4)
  1. XELJANZ XR [Suspect]
     Active Substance: TOFACITINIB CITRATE
     Indication: Rheumatoid arthritis
     Dosage: 11 MG
     Dates: end: 20210805
  2. XELJANZ XR [Suspect]
     Active Substance: TOFACITINIB CITRATE
     Dosage: UNK
  3. XELJANZ XR [Suspect]
     Active Substance: TOFACITINIB CITRATE
     Dosage: 1 DF, DAILY (ONE TABLET EVERY DAY IN MORNING)
  4. XELJANZ XR [Suspect]
     Active Substance: TOFACITINIB CITRATE
     Dosage: 11 MG
     Route: 048

REACTIONS (10)
  - Cerebrovascular accident [Unknown]
  - Neoplasm malignant [Unknown]
  - Cardiac operation [Recovered/Resolved]
  - Intentional product misuse [Unknown]
  - Gait disturbance [Unknown]
  - Nervousness [Unknown]
  - Arthritis [Unknown]
  - Muscular weakness [Unknown]
  - Confusional state [Unknown]
  - Emotional disorder [Unknown]
